FAERS Safety Report 20289878 (Version 1)
Quarter: 2022Q1

REPORT INFORMATION
  Report Type: Spontaneous
  Country: US (occurrence: US)
  Receive Date: 20220104
  Receipt Date: 20220104
  Transmission Date: 20220423
  Serious: No
  Sender: FDA-Public Use
  Company Number: US-009507513-2112USA005347

PATIENT
  Age: 19 Year
  Sex: Male

DRUGS (6)
  1. IVERMECTIN [Suspect]
     Active Substance: IVERMECTIN
     Indication: Septic shock
     Dosage: UNK
  2. GENTAMICIN [Concomitant]
     Active Substance: GENTAMICIN
     Indication: Septic shock
     Dosage: UNK
  3. MEROPENEM [Concomitant]
     Active Substance: MEROPENEM
     Indication: Septic shock
  4. SULFAMETHOXAZOLE\TRIMETHOPRIM [Concomitant]
     Active Substance: SULFAMETHOXAZOLE\TRIMETHOPRIM
     Indication: Septic shock
  5. AMPHOTERICIN B [Concomitant]
     Active Substance: AMPHOTERICIN B
     Indication: Septic shock
  6. ALBENDAZOLE [Concomitant]
     Active Substance: ALBENDAZOLE
     Indication: Septic shock

REACTIONS (1)
  - Product use in unapproved indication [Unknown]
